FAERS Safety Report 5419454-7 (Version None)
Quarter: 2007Q3

REPORT INFORMATION
  Report Type: 
  Country: None (occurrence: None)
  Receive Date: 20070820
  Receipt Date: 20070808
  Transmission Date: 20080115
  Serious: Yes (Death)
  Sender: FDA-Public Use
  Company Number: B0483280A

PATIENT
  Age: 62 Year
  Sex: Male

DRUGS (1)
  1. RANIDIL [Suspect]
     Dosage: 50MG PER DAY
     Route: 042
     Dates: start: 20070722, end: 20070723

REACTIONS (3)
  - GASTROINTESTINAL NECROSIS [None]
  - LIVEDO RETICULARIS [None]
  - MELAENA [None]
